FAERS Safety Report 10081927 (Version 1)
Quarter: 2014Q2

REPORT INFORMATION
  Report Type: Spontaneous
  Country: FR (occurrence: FR)
  Receive Date: 20140416
  Receipt Date: 20140416
  Transmission Date: 20141212
  Serious: Yes (Hospitalization)
  Sender: FDA-Public Use
  Company Number: FR-GLAXOSMITHKLINE-B0984293A

PATIENT
  Age: 32 Year
  Sex: Female

DRUGS (14)
  1. ZELITREX [Suspect]
     Indication: ORAL HERPES
     Route: 048
     Dates: start: 20140220
  2. HUMIRA [Suspect]
     Indication: PSORIASIS
     Dosage: 1INJ EVERY TWO WEEKS
     Route: 058
     Dates: start: 201311, end: 201403
  3. TOLEXINE [Suspect]
     Indication: ACNE
     Dosage: 50MCG TWICE PER DAY
     Route: 048
     Dates: start: 20131118
  4. METRONIDAZOL [Suspect]
     Indication: HELICOBACTER GASTRITIS
     Route: 048
     Dates: start: 20140207, end: 20140217
  5. ENTOCORT [Suspect]
     Indication: PRODUCT USED FOR UNKNOWN INDICATION
     Dosage: 9MG PER DAY
     Route: 048
     Dates: end: 20140228
  6. COLCHICINE [Suspect]
     Indication: APHTHOUS STOMATITIS
     Route: 048
     Dates: start: 20140220, end: 20140224
  7. TETRACYCLINE [Suspect]
     Indication: HELICOBACTER GASTRITIS
     Route: 048
     Dates: start: 20140207, end: 20140217
  8. BISMUTH [Suspect]
     Indication: HELICOBACTER GASTRITIS
     Route: 048
     Dates: start: 20140207, end: 20140217
  9. NOCTAMIDE [Concomitant]
     Route: 065
  10. PILOCARPIN [Concomitant]
     Route: 065
  11. PLAQUENIL [Concomitant]
     Indication: CUTANEOUS LUPUS ERYTHEMATOSUS
     Route: 065
  12. INEXIUM [Concomitant]
     Route: 065
  13. LYRICA [Concomitant]
     Route: 065
  14. SULFARLEM [Concomitant]
     Route: 065

REACTIONS (5)
  - Clostridium difficile colitis [Recovered/Resolved]
  - Nausea [Recovered/Resolved]
  - Pyrexia [Recovered/Resolved]
  - Diarrhoea [Recovered/Resolved]
  - Abdominal pain [Recovered/Resolved]
